FAERS Safety Report 9152934 (Version 1)
Quarter: 2013Q1

REPORT INFORMATION
  Report Type: Spontaneous
  Country: US (occurrence: US)
  Receive Date: 20130205
  Receipt Date: 20130205
  Transmission Date: 20140127
  Serious: Yes (Other)
  Sender: FDA-Public Use
  Company Number: US-RB-047681-12

PATIENT
  Age: 36 Year
  Sex: Female

DRUGS (3)
  1. SUBOXONE FILM [Suspect]
     Indication: DRUG DEPENDENCE
     Dosage: SUBOXONE FILM
     Route: 060
     Dates: start: 20121120
  2. EFFEXOR [Concomitant]
     Indication: DEPRESSION
     Route: 065
     Dates: start: 2000
  3. TOBACCO [Concomitant]
     Indication: NICOTINE DEPENDENCE
     Dosage: 1/2 PACK/DAY (10 CIGARETTES DAILY)
     Route: 065

REACTIONS (10)
  - Off label use [Recovered/Resolved]
  - Wrong technique in drug usage process [Not Recovered/Not Resolved]
  - Abdominal tenderness [Recovered/Resolved]
  - Constipation [Recovered/Resolved]
  - Chromaturia [Recovered/Resolved]
  - Yellow skin [Recovered/Resolved]
  - Ocular icterus [Recovered/Resolved]
  - Nausea [Recovered/Resolved]
  - Decreased appetite [Recovered/Resolved]
  - Investigation abnormal [Recovered/Resolved]
